FAERS Safety Report 19746278 (Version 1)
Quarter: 2021Q3

REPORT INFORMATION
  Report Type: Report from Study
  Country: None (occurrence: US)
  Receive Date: 20210826
  Receipt Date: 20210826
  Transmission Date: 20211014
  Serious: Yes (Hospitalization)
  Sender: FDA-Public Use
  Company Number: US-ABBVIE-21K-163-4052028-00

PATIENT
  Sex: Male

DRUGS (3)
  1. COVID?19 VACCINE [Concomitant]
     Indication: COVID-19 IMMUNISATION
     Dosage: PFIZER/BIONTECH
     Route: 030
     Dates: start: 20210112, end: 20210112
  2. HUMIRA [Suspect]
     Active Substance: ADALIMUMAB
     Indication: COLITIS ULCERATIVE
     Dosage: CITRATE FREE
     Route: 058
  3. COVID?19 VACCINE [Concomitant]
     Dosage: PFIZER/BIONTECH
     Route: 030
     Dates: start: 20210122, end: 20210122

REACTIONS (5)
  - Arthralgia [Unknown]
  - Rotator cuff syndrome [Unknown]
  - Intestinal obstruction [Unknown]
  - Blood pressure increased [Unknown]
  - Glucose tolerance impaired [Unknown]

NARRATIVE: CASE EVENT DATE: 2017
